FAERS Safety Report 22378339 (Version 1)
Quarter: 2023Q2

REPORT INFORMATION
  Report Type: Spontaneous
  Country: US (occurrence: US)
  Receive Date: 20230529
  Receipt Date: 20230529
  Transmission Date: 20230722
  Serious: Yes (Life-Threatening, Hospitalization)
  Sender: FDA-Public Use
  Company Number: US-drreddys-LIT/USA/23/0165937

PATIENT
  Age: 76 Year
  Sex: Female

DRUGS (1)
  1. NALOXONE HYDROCHLORIDE [Suspect]
     Active Substance: NALOXONE HYDROCHLORIDE
     Indication: Unresponsive to stimuli

REACTIONS (2)
  - Injection site cyst [Unknown]
  - Drug ineffective [Unknown]
